FAERS Safety Report 18288920 (Version 3)
Quarter: 2021Q1

REPORT INFORMATION
  Report Type: Spontaneous
  Country: AR (occurrence: AR)
  Receive Date: 20200921
  Receipt Date: 20210122
  Transmission Date: 20210419
  Serious: Yes (Hospitalization, Other)
  Sender: FDA-Public Use
  Company Number: AR-PFIZER INC-2020362838

PATIENT
  Age: 68 Year
  Sex: Female

DRUGS (1)
  1. IBRANCE [Suspect]
     Active Substance: PALBOCICLIB
     Indication: BREAST CANCER METASTATIC
     Dosage: 125 MG, CYCLIC, SCHEME 3/1
     Dates: start: 20200604, end: 20201007

REACTIONS (7)
  - COVID-19 [Unknown]
  - Depression [Unknown]
  - Pain [Unknown]
  - Pulmonary oedema [Unknown]
  - Asthenia [Unknown]
  - Gait inability [Unknown]
  - Pneumonia [Unknown]

NARRATIVE: CASE EVENT DATE: 20201007
